FAERS Safety Report 25255891 (Version 1)
Quarter: 2025Q2

REPORT INFORMATION
  Report Type: Spontaneous
  Country: CN (occurrence: CN)
  Receive Date: 20250430
  Receipt Date: 20250430
  Transmission Date: 20250717
  Serious: Yes (Hospitalization, Other)
  Sender: PFIZER
  Company Number: CN-PFIZER INC-PV202500051061

PATIENT
  Age: 75 Year
  Sex: Female
  Weight: 50 kg

DRUGS (10)
  1. MEROPENEM [Suspect]
     Active Substance: MEROPENEM
     Indication: Anti-infective therapy
     Dosage: 1 G, 3X/DAY
     Route: 041
     Dates: start: 20250305, end: 20250404
  2. MEROPENEM [Suspect]
     Active Substance: MEROPENEM
     Dosage: 1 G, 3X/DAY
     Route: 041
     Dates: start: 20250411, end: 20250422
  3. VANCOMYCIN [Concomitant]
     Active Substance: VANCOMYCIN
     Indication: Anti-infective therapy
     Dates: start: 20250310, end: 20250314
  4. VANCOMYCIN [Concomitant]
     Active Substance: VANCOMYCIN
     Dates: start: 20250402, end: 20250404
  5. VANCOMYCIN [Concomitant]
     Active Substance: VANCOMYCIN
     Dates: start: 20250411, end: 20250422
  6. PIPERACILLIN SODIUM\TAZOBACTAM SODIUM [Concomitant]
     Active Substance: PIPERACILLIN SODIUM\TAZOBACTAM SODIUM
     Indication: Anti-infective therapy
     Dates: start: 20250317, end: 20250319
  7. PIPERACILLIN SODIUM\TAZOBACTAM SODIUM [Concomitant]
     Active Substance: PIPERACILLIN SODIUM\TAZOBACTAM SODIUM
     Dates: start: 20250404, end: 20250411
  8. CASPOFUNGIN [Concomitant]
     Active Substance: CASPOFUNGIN
     Indication: Antifungal treatment
     Dates: start: 20250324, end: 20250405
  9. LINEZOLID [Concomitant]
     Active Substance: LINEZOLID
     Indication: Anti-infective therapy
     Dates: start: 20250404
  10. LENALIDOMIDE [Concomitant]
     Active Substance: LENALIDOMIDE
     Dates: end: 20250411

REACTIONS (2)
  - Platelet count decreased [Unknown]
  - Nephrotic syndrome [Unknown]

NARRATIVE: CASE EVENT DATE: 20250101
